FAERS Safety Report 6643657-7 (Version None)
Quarter: 2010Q1

REPORT INFORMATION
  Report Type: 
  Country: None (occurrence: None)
  Receive Date: 20100321
  Receipt Date: 20100308
  Transmission Date: 20100710
  Serious: Yes (Hospitalization, Other)
  Sender: FDA-Public Use
  Company Number: US-ELI_LILLY_AND_COMPANY-US201001000630

PATIENT
  Sex: Male

DRUGS (13)
  1. BYETTA [Suspect]
     Indication: TYPE 2 DIABETES MELLITUS
     Dosage: 5 UG, 2/D
     Route: 058
     Dates: start: 20050101, end: 20080101
  2. BYETTA [Suspect]
     Dosage: 10 UG, 2/D
     Route: 058
     Dates: start: 20080101, end: 20090701
  3. BYETTA [Suspect]
     Dosage: 5 UG, OTHER
     Route: 058
     Dates: start: 20090701
  4. KLOR-CON [Concomitant]
     Indication: SUPPLEMENTATION THERAPY
     Dosage: 20 MEQ, 2/D
     Route: 048
  5. TRIAMTERENE AND HYDROCHLOROTHIAZIDE [Concomitant]
     Indication: POLYURIA
     Dosage: UNK, DAILY (1/D)
     Route: 048
  6. SYNTHROID [Concomitant]
     Indication: THYROID DISORDER
     Dosage: 150 UG, DAILY (1/D)
     Route: 048
     Dates: start: 20000101
  7. PROTONIX [Concomitant]
     Indication: GASTROOESOPHAGEAL REFLUX DISEASE
     Dosage: 40 MG, DAILY (1/D)
     Route: 048
  8. ASPIRIN [Concomitant]
     Indication: CARDIOVASCULAR EVENT PROPHYLAXIS
     Dosage: 81 MG, DAILY (1/D)
     Route: 048
  9. ALLOPURINOL [Concomitant]
     Indication: PROPHYLAXIS
     Dosage: 300 MG, DAILY (1/D)
     Route: 048
  10. CLARITIN [Concomitant]
     Indication: HYPERSENSITIVITY
     Dosage: 10 MG, DAILY (1/D)
     Route: 048
  11. SYMAX [Concomitant]
     Indication: IRRITABLE BOWEL SYNDROME
     Dosage: UNK, 2/D
     Route: 048
  12. DIOVAN [Concomitant]
     Indication: HYPERTENSION
     Dosage: 160 MG, DAILY (1/D)
  13. AVANDIA [Concomitant]
     Indication: TYPE 2 DIABETES MELLITUS
     Dates: start: 20060101, end: 20080711

REACTIONS (24)
  - ASTHENIA [None]
  - BLOOD GLUCOSE DECREASED [None]
  - BLOOD GLUCOSE INCREASED [None]
  - BLOOD MAGNESIUM [None]
  - CARDIAC ABLATION [None]
  - CARDIAC PACEMAKER INSERTION [None]
  - CHEST PAIN [None]
  - DIZZINESS [None]
  - DRUG ADMINISTRATION ERROR [None]
  - DRUG INEFFECTIVE [None]
  - FALL [None]
  - FEELING ABNORMAL [None]
  - HEART RATE INCREASED [None]
  - HUNGER [None]
  - INCORRECT DOSE ADMINISTERED [None]
  - LOSS OF CONSCIOUSNESS [None]
  - MUSCULOSKELETAL DISCOMFORT [None]
  - NAUSEA [None]
  - OROPHARYNGEAL PAIN [None]
  - PROTHROMBIN LEVEL INCREASED [None]
  - PYREXIA [None]
  - RETCHING [None]
  - ROSACEA [None]
  - TREMOR [None]
